FAERS Safety Report 7299184-X (Version None)
Quarter: 2011Q1

REPORT INFORMATION
  Report Type: 
  Country: None (occurrence: None)
  Receive Date: 20110217
  Receipt Date: 20110214
  Transmission Date: 20110831
  Serious: Yes (Other)
  Sender: FDA-Public Use
  Company Number: US-AMGEN-USASP2011006648

PATIENT
  Age: 78 Year
  Sex: Male
  Weight: 92.063 kg

DRUGS (2)
  1. CORTICOSTEROIDS [Concomitant]
  2. NPLATE [Suspect]
     Indication: IDIOPATHIC THROMBOCYTOPENIC PURPURA
     Dosage: 93 A?G, QWK
     Route: 058
     Dates: start: 20101213, end: 20110114

REACTIONS (1)
  - THERAPEUTIC RESPONSE DECREASED [None]
